FAERS Safety Report 18355494 (Version 1)
Quarter: 2020Q4

REPORT INFORMATION
  Report Type: Spontaneous
  Country: FR (occurrence: FR)
  Receive Date: 20201007
  Receipt Date: 20201007
  Transmission Date: 20210114
  Serious: Yes (Hospitalization)
  Sender: FDA-Public Use
  Company Number: FR-PFIZER INC-2020384017

PATIENT
  Age: 54 Year
  Sex: Female
  Weight: 48 kg

DRUGS (1)
  1. MEDROL [Suspect]
     Active Substance: METHYLPREDNISOLONE
     Indication: EPENDYMOMA
     Dosage: 64 MG
     Route: 048
     Dates: start: 202002, end: 20200507

REACTIONS (4)
  - Bartholinitis [Recovering/Resolving]
  - Off label use [Unknown]
  - Pneumocystis jirovecii pneumonia [Recovering/Resolving]
  - Product use in unapproved indication [Unknown]

NARRATIVE: CASE EVENT DATE: 202002
